FAERS Safety Report 7125369-9 (Version None)
Quarter: 2010Q4

REPORT INFORMATION
  Report Type: 
  Country: None (occurrence: None)
  Receive Date: 20101129
  Receipt Date: 20101117
  Transmission Date: 20110411
  Serious: Yes (Hospitalization)
  Sender: FDA-Public Use
  Company Number: DE-CEPHALON-2010005388

PATIENT
  Sex: Female

DRUGS (10)
  1. TREANDA [Suspect]
     Indication: B-CELL LYMPHOMA
     Route: 042
     Dates: start: 20100920, end: 20100922
  2. RAMIPRIL [Concomitant]
  3. ATACAND [Concomitant]
  4. AMLODIPINE [Concomitant]
  5. MOXONIDINE [Concomitant]
  6. ACETYL SALICYLIC ACID [Concomitant]
  7. DOXEPIN HCL [Concomitant]
  8. METOPROLOL SUCCINATE [Concomitant]
  9. CIPRAMIL [Concomitant]
  10. CLEXANE [Concomitant]

REACTIONS (2)
  - ATRIAL FIBRILLATION [None]
  - TACHYARRHYTHMIA [None]
